FAERS Safety Report 8852435 (Version 9)
Quarter: 2014Q2

REPORT INFORMATION
  Report Type: Spontaneous
  Country: US (occurrence: US)
  Receive Date: 20121022
  Receipt Date: 20140430
  Transmission Date: 20141212
  Serious: Yes (Hospitalization, Other)
  Sender: FDA-Public Use
  Company Number: US-B.I. PHARMACEUTICALS,INC./RIDGEFIELD-2012-BP-25584BP

PATIENT
  Age: 76 Year
  Sex: Female
  Weight: 62.14 kg

DRUGS (12)
  1. PRADAXA [Suspect]
     Indication: ANTICOAGULANT THERAPY
     Dosage: 300 MG
     Route: 048
     Dates: start: 201104, end: 20110512
  2. PRADAXA [Suspect]
     Indication: ATRIAL FIBRILLATION
  3. LOPRESSOR [Concomitant]
     Dosage: 100 MG
     Route: 048
  4. DIGOXIN [Concomitant]
     Dosage: 0.125 MG
     Route: 048
  5. SIMVASTATIN [Concomitant]
     Dosage: 10 G
     Route: 048
  6. VERAPAMIL [Concomitant]
     Dosage: 120 MG
     Route: 048
  7. VERAPAMIL [Concomitant]
     Dosage: 180 MG
     Route: 065
  8. LASIX [Concomitant]
     Dosage: 40 MG
     Route: 048
  9. COLCHICINE [Concomitant]
     Dosage: 1.2 MG
     Route: 048
  10. PERCOCET [Concomitant]
     Route: 048
  11. ASPIRIN [Concomitant]
     Dosage: 81 MG
     Route: 048
  12. MULTIVITAMIN [Concomitant]
     Route: 048

REACTIONS (8)
  - Haemorrhage [Unknown]
  - Melaena [Unknown]
  - Gastrointestinal haemorrhage [Unknown]
  - Iron deficiency anaemia [Unknown]
  - Delusion [Not Recovered/Not Resolved]
  - Chest pain [Unknown]
  - Pain in extremity [Unknown]
  - Asthenia [Unknown]
